FAERS Safety Report 5963890-7 (Version None)
Quarter: 2008Q4

REPORT INFORMATION
  Report Type: 
  Country: None (occurrence: None)
  Receive Date: 20081124
  Receipt Date: 20081113
  Transmission Date: 20090506
  Serious: Yes (Death)
  Sender: FDA-Public Use
  Company Number: GB-ROCHE-597353

PATIENT
  Sex: Male

DRUGS (1)
  1. XELODA [Suspect]
     Route: 065
     Dates: start: 19990101, end: 20050901

REACTIONS (1)
  - LEUKAEMIA [None]
